FAERS Safety Report 8915208 (Version 1)
Quarter: 2012Q4

REPORT INFORMATION
  Report Type: 
  Country: US (occurrence: US)
  Receive Date: 20121119
  Receipt Date: 20121119
  Transmission Date: 20130627
  Serious: Yes (Other)
  Sender: FDA-Public Use
  Company Number: US-PFIZER INC-2012288401

PATIENT
  Sex: Male

DRUGS (2)
  1. LYRICA [Suspect]
     Indication: FIBROMYALGIA
     Dosage: UNK, 3x/day
     Dates: end: 201210
  2. LYRICA [Suspect]
     Dosage: UNK, daily
     Dates: start: 201210

REACTIONS (6)
  - Drug withdrawal syndrome [Unknown]
  - Heat stroke [Unknown]
  - Hyperhidrosis [Unknown]
  - Nasopharyngitis [Unknown]
  - Insomnia [Unknown]
  - Nervousness [Unknown]
